FAERS Safety Report 23464615 (Version 1)
Quarter: 2024Q1

REPORT INFORMATION
  Report Type: Spontaneous
  Country: FR (occurrence: FR)
  Receive Date: 20240201
  Receipt Date: 20240201
  Transmission Date: 20240409
  Serious: Yes (Death, Life-Threatening, Other)
  Sender: FDA-Public Use
  Company Number: FR-AFSSAPS-LM2024000017

PATIENT
  Age: 87 Year
  Sex: Male
  Weight: 58 kg

DRUGS (7)
  1. CEFPODOXIME [Suspect]
     Active Substance: CEFPODOXIME
     Indication: Bronchitis
     Dosage: UNK
     Route: 048
     Dates: start: 202309, end: 20231221
  2. METHOTREXATE SODIUM [Suspect]
     Active Substance: METHOTREXATE SODIUM
     Indication: Rheumatoid arthritis
     Dosage: 15 MILLIGRAM, EVERY WEEK
     Route: 048
     Dates: end: 20231221
  3. MITOMYCIN [Suspect]
     Active Substance: MITOMYCIN
     Indication: Bladder cancer
     Dosage: 40 MILLIGRAM, EVERY WEEK
     Route: 043
     Dates: start: 20231026, end: 20231214
  4. FOLIC ACID [Concomitant]
     Active Substance: FOLIC ACID
     Indication: Product used for unknown indication
     Dosage: UNK
     Route: 065
  5. PREDNISONE [Concomitant]
     Active Substance: PREDNISONE
     Indication: Product used for unknown indication
     Dosage: UNK
     Route: 065
  6. IRBESARTAN [Concomitant]
     Active Substance: IRBESARTAN
     Indication: Product used for unknown indication
     Dosage: UNK
     Route: 065
  7. TAMSULOSIN HYDROCHLORIDE [Concomitant]
     Active Substance: TAMSULOSIN HYDROCHLORIDE
     Indication: Product used for unknown indication
     Dosage: UNK
     Route: 065

REACTIONS (3)
  - COVID-19 [Fatal]
  - Pneumocystis jirovecii pneumonia [Fatal]
  - Pancytopenia [Recovered/Resolved]

NARRATIVE: CASE EVENT DATE: 20231220
